FAERS Safety Report 17318207 (Version 1)
Quarter: 2020Q1

REPORT INFORMATION
  Report Type: Spontaneous
  Country: US (occurrence: US)
  Receive Date: 20200124
  Receipt Date: 20200124
  Transmission Date: 20200409
  Serious: No
  Sender: FDA-Public Use
  Company Number: US-BAYER-2020-011015

PATIENT
  Age: 76 Year
  Sex: Male

DRUGS (2)
  1. XGEVA [Concomitant]
     Active Substance: DENOSUMAB
     Indication: PROSTATE CANCER METASTATIC
     Dosage: UNK
     Dates: start: 20180507
  2. STIVARGA [Suspect]
     Active Substance: REGORAFENIB
     Indication: PROSTATE CANCER METASTATIC
     Dosage: 160 MG
     Dates: start: 20180507

REACTIONS (3)
  - Off label use [None]
  - Balance disorder [Recovered/Resolved]
  - Product use in unapproved indication [None]
